FAERS Safety Report 14071166 (Version 1)
Quarter: 2017Q4

REPORT INFORMATION
  Report Type: Spontaneous
  Country: US (occurrence: US)
  Receive Date: 20171010
  Receipt Date: 20171010
  Transmission Date: 20180321
  Serious: No
  Sender: FDA-Public Use
  Company Number: US-JNJFOC-20170720368

PATIENT
  Sex: Male

DRUGS (2)
  1. CHILDRENS MOTRIN [Suspect]
     Active Substance: IBUPROFEN
     Route: 048
  2. CHILDRENS MOTRIN [Suspect]
     Active Substance: IBUPROFEN
     Indication: PRODUCT USED FOR UNKNOWN INDICATION
     Dosage: DOSE: SMALL DROP
     Route: 048

REACTIONS (4)
  - Product use in unapproved indication [Recovered/Resolved]
  - Throat irritation [Recovered/Resolved]
  - Product use issue [Recovered/Resolved]
  - Oral discomfort [Recovered/Resolved]
